FAERS Safety Report 6935365-X (Version None)
Quarter: 2010Q3

REPORT INFORMATION
  Report Type: 
  Country: None (occurrence: None)
  Receive Date: 20100823
  Receipt Date: 20100816
  Transmission Date: 20110219
  Serious: Yes (Hospitalization)
  Sender: FDA-Public Use
  Company Number: US-BIOGENIDEC-2010BI026921

PATIENT
  Age: 49 Year
  Sex: Female
  Weight: 66 kg

DRUGS (18)
  1. TYSABRI [Suspect]
     Indication: MULTIPLE SCLEROSIS
     Route: 042
     Dates: start: 20090722
  2. LEVOTHYROXINE SODIUM [Concomitant]
     Indication: HYPOTHYROIDISM
  3. NICODERM [Concomitant]
     Indication: TOBACCO USER
     Route: 062
  4. NYSTATIN [Concomitant]
     Route: 048
  5. BACLOFEN [Concomitant]
     Route: 048
  6. CARBAMAZEPINE [Concomitant]
  7. CLINDAMYCIN [Concomitant]
     Dates: start: 20100801
  8. GABAPENTIN [Concomitant]
     Dates: end: 20100727
  9. GABAPENTIN [Concomitant]
     Route: 048
     Dates: start: 20100727, end: 20100807
  10. FLUOXETINE [Concomitant]
  11. ACETAMINOPHEN [Concomitant]
  12. DIPHENHYDRAMINE [Concomitant]
  13. DARVOCET-N 100 [Concomitant]
  14. ALPRAZOLAM [Concomitant]
  15. AMLODIPINE [Concomitant]
  16. LYRICA [Concomitant]
     Route: 048
     Dates: start: 20100727
  17. KEPPRA [Concomitant]
     Route: 048
     Dates: start: 20100807
  18. SEROQUEL [Concomitant]
     Route: 048
     Dates: start: 20100801

REACTIONS (2)
  - DIZZINESS [None]
  - THERAPEUTIC AGENT TOXICITY [None]
